FAERS Safety Report 12675231 (Version 3)
Quarter: 2016Q3

REPORT INFORMATION
  Report Type: Spontaneous
  Country: EG (occurrence: EG)
  Receive Date: 20160822
  Receipt Date: 20160921
  Transmission Date: 20161109
  Serious: Yes (Death, Hospitalization, Other)
  Sender: FDA-Public Use
  Company Number: EG-GILEAD-2016-0229399

PATIENT
  Age: 51 Year
  Sex: Male

DRUGS (11)
  1. ALDACTONE [Concomitant]
     Active Substance: SPIRONOLACTONE
     Indication: DIURETIC THERAPY
     Dosage: 100 MG, QD
     Route: 048
     Dates: start: 20160702
  2. HARVONI [Suspect]
     Active Substance: LEDIPASVIR\SOFOSBUVIR
     Indication: CHRONIC HEPATITIS C
     Dosage: 1 DF, QD
     Route: 048
     Dates: start: 201604
  3. TORSERETIC [Concomitant]
     Indication: HYPERTENSION
     Dosage: 20 MG, QD
     Route: 048
     Dates: start: 20160702
  4. TORSERETIC [Concomitant]
     Indication: OEDEMA
  5. NEXIUM [Concomitant]
     Active Substance: ESOMEPRAZOLE MAGNESIUM
     Indication: GASTROOESOPHAGEAL REFLUX DISEASE
     Dosage: 40 MG, QD
     Route: 048
     Dates: start: 20160702
  6. INDERAL [Concomitant]
     Active Substance: PROPRANOLOL HYDROCHLORIDE
     Indication: HYPERTENSION
     Route: 065
  7. LASIX [Concomitant]
     Active Substance: FUROSEMIDE
     Indication: HYPERTENSION
  8. LEGALON [Concomitant]
     Active Substance: MILK THISTLE
     Route: 065
  9. URSOFALK [Concomitant]
     Active Substance: URSODIOL
     Indication: BILIARY CIRRHOSIS PRIMARY
     Dosage: 250 MG, BID
     Route: 048
     Dates: start: 20160702
  10. LASIX [Concomitant]
     Active Substance: FUROSEMIDE
     Indication: DIURETIC THERAPY
     Route: 065
  11. EASYLAX                            /00259101/ [Concomitant]
     Indication: LAXATIVE SUPPORTIVE CARE

REACTIONS (5)
  - Haematemesis [Recovered/Resolved]
  - Varices oesophageal [Recovered/Resolved]
  - Gastric varices [Recovered/Resolved]
  - Hepatic cirrhosis [Unknown]
  - Haemorrhage [Fatal]

NARRATIVE: CASE EVENT DATE: 2016
